FAERS Safety Report 11103987 (Version 1)
Quarter: 2015Q2

REPORT INFORMATION
  Report Type: Report from Study
  Country: US (occurrence: US)
  Receive Date: 20150511
  Receipt Date: 20150511
  Transmission Date: 20150821
  Serious: Yes (Hospitalization, Other)
  Sender: FDA-Public Use
  Company Number: US-BAYER-2015-036582

PATIENT
  Age: 87 Year
  Sex: Female

DRUGS (4)
  1. ADEMPAS [Suspect]
     Active Substance: RIOCIGUAT
     Indication: PULMONARY HYPERTENSION
     Dosage: 2 MG, TID (SHIPPED 13-APR-2015)
     Route: 048
  2. TRACLEER [Concomitant]
     Active Substance: BOSENTAN\BOSENTAN MONOHYDRATE
  3. ADEMPAS [Suspect]
     Active Substance: RIOCIGUAT
     Indication: PULMONARY HYPERTENSION
     Dosage: 1 MG, TID (SHIPPED 06-FEB-2015)
     Route: 048
     Dates: start: 20150207
  4. ASPIRIN. [Concomitant]
     Active Substance: ASPIRIN

REACTIONS (9)
  - Vomiting [Unknown]
  - Constipation [None]
  - Dysuria [None]
  - Nausea [Unknown]
  - Dyspnoea [Unknown]
  - Chest discomfort [Unknown]
  - Urinary retention [None]
  - Wheezing [None]
  - Underdose [None]

NARRATIVE: CASE EVENT DATE: 20150424
